FAERS Safety Report 10375313 (Version 1)
Quarter: 2014Q3

REPORT INFORMATION
  Report Type: Spontaneous
  Country: AR (occurrence: None)
  Receive Date: 20140806
  Receipt Date: 20140806
  Transmission Date: 20150326
  Serious: Yes (Other)
  Sender: FDA-Public Use
  Company Number: IPC201407-000400

PATIENT
  Age: 57 Year
  Sex: Male

DRUGS (2)
  1. DRONEDARONE [Suspect]
     Active Substance: DRONEDARONE
  2. METOPROLOL TARTRATE. [Suspect]
     Active Substance: METOPROLOL TARTRATE

REACTIONS (8)
  - Lethargy [None]
  - Atrioventricular block first degree [None]
  - Supraventricular extrasystoles [None]
  - Atrial fibrillation [None]
  - Hot flush [None]
  - Dyspnoea [None]
  - Electrocardiogram QT prolonged [None]
  - Drug intolerance [None]
